FAERS Safety Report 22167096 (Version 2)
Quarter: 2023Q2

REPORT INFORMATION
  Report Type: Spontaneous
  Country: RO (occurrence: RO)
  Receive Date: 20230403
  Receipt Date: 20230509
  Transmission Date: 20230722
  Serious: Yes (Life-Threatening, Other)
  Sender: FDA-Public Use
  Company Number: RO-AMGEN-ROUSP2023049180

PATIENT
  Age: 48 Year
  Sex: Female

DRUGS (5)
  1. LEUCOVORIN [Suspect]
     Active Substance: LEUCOVORIN
     Indication: Colorectal cancer metastatic
     Dosage: UNK
     Route: 065
     Dates: start: 202209
  2. OXALIPLATIN [Suspect]
     Active Substance: OXALIPLATIN
     Indication: Colorectal cancer metastatic
     Dosage: UNK
     Route: 065
     Dates: start: 202209
  3. FLUOROURACIL [Suspect]
     Active Substance: FLUOROURACIL
     Indication: Colorectal cancer metastatic
     Dosage: UNK
     Route: 065
     Dates: start: 202209
  4. VECTIBIX [Suspect]
     Active Substance: PANITUMUMAB
     Indication: Colorectal cancer metastatic
     Dosage: SOLUTION FOR INJECTION
     Route: 042
     Dates: start: 202303
  5. VECTIBIX [Suspect]
     Active Substance: PANITUMUMAB
     Indication: Colon cancer stage IV
     Dosage: 390 MILLIGRAM ( 6 MG/KG), Q2WK (EVERY TWO WEEKS)?SOLUTION FOR INJECTION
     Route: 042
     Dates: start: 20220914, end: 2023

REACTIONS (6)
  - Neutropenia [Recovered/Resolved]
  - Colon cancer recurrent [None]
  - Skin toxicity [Recovered/Resolved]
  - Pustule [Recovered/Resolved]
  - Therapy partial responder [None]
  - Paronychia [Recovered/Resolved]
